FAERS Safety Report 15206862 (Version 1)
Quarter: 2018Q3

REPORT INFORMATION
  Report Type: Spontaneous
  Country: GB (occurrence: GB)
  Receive Date: 20180727
  Receipt Date: 20180727
  Transmission Date: 20181010
  Serious: Yes (Other)
  Sender: FDA-Public Use
  Company Number: GB-SUN PHARMACEUTICAL INDUSTRIES LTD-2018RR-179781

PATIENT
  Age: 69 Year
  Sex: Male

DRUGS (2)
  1. ACETYLSALICYLIC ACID [Concomitant]
     Active Substance: ASPIRIN
     Indication: CEREBROVASCULAR ACCIDENT
     Dosage: ()
     Route: 065
     Dates: start: 20180514
  2. ATORVASTATIN [Suspect]
     Active Substance: ATORVASTATIN
     Indication: PROPHYLAXIS
     Dosage: 80 MG, DAILY
     Route: 048
     Dates: start: 20180514, end: 20180522

REACTIONS (2)
  - Stevens-Johnson syndrome [Recovering/Resolving]
  - Lip ulceration [Unknown]

NARRATIVE: CASE EVENT DATE: 20180522
